FAERS Safety Report 23097020 (Version 1)
Quarter: 2023Q4

REPORT INFORMATION
  Report Type: Spontaneous
  Country: US (occurrence: US)
  Receive Date: 20231023
  Receipt Date: 20231023
  Transmission Date: 20240110
  Serious: Yes (Other)
  Sender: FDA-Public Use
  Company Number: US-009507513-2310USA008124

PATIENT
  Age: 84 Year
  Sex: Male

DRUGS (2)
  1. KEYTRUDA [Suspect]
     Active Substance: PEMBROLIZUMAB
     Indication: Malignant melanoma
     Dosage: EVERY 2 WEEKS
     Route: 042
     Dates: start: 201401
  2. VONJO [Concomitant]
     Active Substance: PACRITINIB

REACTIONS (3)
  - Leukaemia [Unknown]
  - Radiotherapy [Unknown]
  - Inappropriate schedule of product administration [Unknown]

NARRATIVE: CASE EVENT DATE: 20140101
